FAERS Safety Report 6401251-7 (Version None)
Quarter: 2009Q4

REPORT INFORMATION
  Report Type: 
  Country: None (occurrence: None)
  Receive Date: 20091009
  Receipt Date: 20091001
  Transmission Date: 20100525
  Serious: Yes (Other)
  Sender: FDA-Public Use
  Company Number: 393986

PATIENT
  Age: 72 Year
  Sex: Male

DRUGS (3)
  1. CARBOPLATIN [Suspect]
     Indication: SMALL CELL LUNG CANCER STAGE UNSPECIFIED
     Dosage: 6 AUC
  2. ETOPOSIDE [Suspect]
     Indication: SMALL CELL LUNG CANCER STAGE UNSPECIFIED
     Dosage: 100 MG/M2
  3. CISPLATIN [Suspect]
     Indication: SMALL CELL LUNG CANCER STAGE UNSPECIFIED
     Dosage: 80 MG/M2

REACTIONS (22)
  - ABSCESS [None]
  - ANAEMIA [None]
  - BACTERIAL TEST POSITIVE [None]
  - BACTEROIDES INFECTION [None]
  - CONSTIPATION [None]
  - DISEASE RECURRENCE [None]
  - DYSPNOEA [None]
  - ENTEROCOCCAL INFECTION [None]
  - FATIGUE [None]
  - GENERALISED OEDEMA [None]
  - HYPOTENSION [None]
  - KLEBSIELLA INFECTION [None]
  - NEPHROPATHY TOXIC [None]
  - REFUSAL OF TREATMENT BY PATIENT [None]
  - RENAL FAILURE ACUTE [None]
  - SEPSIS [None]
  - SMALL INTESTINAL PERFORATION [None]
  - SOMNOLENCE [None]
  - STAPHYLOCOCCAL INFECTION [None]
  - TACHYCARDIA [None]
  - TUMOUR NECROSIS [None]
  - WEIGHT DECREASED [None]
